FAERS Safety Report 16275607 (Version 1)
Quarter: 2019Q2

REPORT INFORMATION
  Report Type: Spontaneous
  Country: US (occurrence: US)
  Receive Date: 20190401
  Receipt Date: 20190401
  Transmission Date: 20190711
  Serious: Yes (Other)
  Sender: FDA-Public Use
  Company Number: None

PATIENT
  Age: 67 Year
  Sex: Male
  Weight: 81.65 kg

DRUGS (9)
  1. LOSARTAN POTASSIUM 25MG GENERIC FOR COZAAR [Suspect]
     Active Substance: LOSARTAN POTASSIUM
     Indication: DIABETIC NEPHROPATHY
     Dosage: ?          QUANTITY:25 MG MILLIGRAM(S);?
     Route: 048
     Dates: start: 20171127, end: 20190228
  2. ENALAPRIL MEALATE [Concomitant]
  3. GLIMIPRIDE [Concomitant]
     Active Substance: GLIMEPIRIDE
  4. LOSARTAN POTASSIUM 25MG GENERIC FOR COZAAR [Suspect]
     Active Substance: LOSARTAN POTASSIUM
     Indication: RECALLED PRODUCT
     Dosage: ?          QUANTITY:25 MG MILLIGRAM(S);?
     Route: 048
     Dates: start: 20171127, end: 20190228
  5. METFORMIN [Concomitant]
     Active Substance: METFORMIN HYDROCHLORIDE
  6. ASA [Concomitant]
     Active Substance: ASPIRIN
  7. MOTRIN [Concomitant]
     Active Substance: IBUPROFEN
  8. VITAMIN D NOS [Concomitant]
     Active Substance: VITAMIN D NOS
  9. VITAMIN C [Concomitant]
     Active Substance: ASCORBIC ACID

REACTIONS (3)
  - Product impurity [None]
  - Recalled product administered [None]
  - Prostate cancer [None]

NARRATIVE: CASE EVENT DATE: 201811
